FAERS Safety Report 11211531 (Version 1)
Quarter: 2015Q2

REPORT INFORMATION
  Report Type: Spontaneous
  Country: CO (occurrence: CO)
  Receive Date: 20150623
  Receipt Date: 20150623
  Transmission Date: 20150821
  Serious: Yes (Other)
  Sender: FDA-Public Use
  Company Number: CO-SUN PHARMACEUTICAL INDUSTRIES LTD-2015RR-98421

PATIENT

DRUGS (1)
  1. ASPIRIN. [Suspect]
     Active Substance: ASPIRIN
     Indication: ALLERGY TEST
     Dosage: 81 MG (CUMULATIVE DOSE OF 125MG)
     Route: 048

REACTIONS (1)
  - Aspirin-exacerbated respiratory disease [Recovering/Resolving]
